FAERS Safety Report 4916716-4 (Version None)
Quarter: 2006Q1

REPORT INFORMATION
  Report Type: 
  Country: None (occurrence: None)
  Receive Date: 20060214
  Receipt Date: 20060124
  Transmission Date: 20060701
  Serious: Yes (Hospitalization)
  Sender: FDA-Public Use
  Company Number: IT200512002031

PATIENT
  Age: 57 Year
  Sex: Female

DRUGS (2)
  1. GEMCITABINE HYDROCHLORIDE (GEMCITABINE HYDROCHLORIDE) VIAL [Suspect]
     Indication: BLADDER CANCER
     Dosage: 1000 MG/M2, OTHER, INTRAVENOUS
     Route: 042
     Dates: start: 20051107, end: 20051114
  2. CISPLATIN(CISPLATIN) VIAL [Suspect]
     Indication: BLADDER CANCER
     Dosage: 70 MG/M2, OTHER, INTRAVENOUS
     Route: 042
     Dates: start: 20051108, end: 20051108

REACTIONS (5)
  - ALKALOSIS [None]
  - DEEP VEIN THROMBOSIS [None]
  - FIBRIN D DIMER INCREASED [None]
  - HYPOCAPNIA [None]
  - PULMONARY EMBOLISM [None]
